FAERS Safety Report 8058490-1 (Version None)
Quarter: 2012Q1

REPORT INFORMATION
  Report Type: 
  Country: None (occurrence: None)
  Receive Date: 20120120
  Receipt Date: 20120117
  Transmission Date: 20120608
  Serious: Yes (Hospitalization)
  Sender: FDA-Public Use
  Company Number: DE-PFIZER INC-2012012625

PATIENT
  Age: 58 Year
  Sex: Male
  Weight: 58 kg

DRUGS (2)
  1. COTRIM [Suspect]
  2. EPLERENONE [Suspect]

REACTIONS (2)
  - RENAL FAILURE ACUTE [None]
  - HYPERKALAEMIA [None]
